FAERS Safety Report 7113308-6 (Version None)
Quarter: 2010Q4

REPORT INFORMATION
  Report Type: 
  Country: None (occurrence: None)
  Receive Date: 20101119
  Receipt Date: 20100806
  Transmission Date: 20110411
  Serious: No
  Sender: FDA-Public Use
  Company Number: A0876218A

PATIENT
  Age: 41 Year
  Sex: Female

DRUGS (3)
  1. WELLBUTRIN SR [Suspect]
     Dosage: 750MG PER DAY
     Route: 065
  2. CYMBALTA [Concomitant]
  3. TRAZODONE HCL [Concomitant]

REACTIONS (1)
  - OVERDOSE [None]
